FAERS Safety Report 9298013 (Version 4)
Quarter: 2013Q4

REPORT INFORMATION
  Report Type: Report from Study
  Country: US (occurrence: US)
  Receive Date: 20130520
  Receipt Date: 20131119
  Transmission Date: 20140711
  Serious: No
  Sender: FDA-Public Use
  Company Number: US-VERTEX PHARMACEUTICALS INC-2013-006124

PATIENT
  Age: 47 Year
  Sex: Female
  Weight: 136 kg

DRUGS (10)
  1. VX-950 (TELAPREVIR) [Suspect]
     Indication: HEPATITIS C
     Dosage: UNK
     Route: 048
     Dates: start: 20130502, end: 20131017
  2. RIBAVIRIN [Suspect]
     Indication: HEPATITIS C
     Dosage: UNK
     Dates: start: 20130502, end: 20131017
  3. PEGASYS [Suspect]
     Indication: HEPATITIS C
     Dosage: UNK
     Dates: start: 20130502, end: 20131017
  4. LOSARTAN POTASSIUM [Concomitant]
     Dosage: 50 MG, QD
  5. CYMBALTA [Concomitant]
     Dosage: 60 MG, QD
  6. FLEXERIL [Concomitant]
     Dosage: 10 MG, TID
  7. SOMA [Concomitant]
     Dosage: 350 MG, TID
  8. PERCOCET [Concomitant]
     Dosage: 10-325 MG
  9. CIPRO [Concomitant]
     Dosage: 500 MG, BID
  10. POTASSIUM CHLORIDE [Concomitant]
     Dosage: ER 10

REACTIONS (18)
  - White blood cell count increased [Recovered/Resolved]
  - Pharyngitis [Unknown]
  - Lymphadenopathy [Unknown]
  - Influenza like illness [Not Recovered/Not Resolved]
  - Insomnia [Not Recovered/Not Resolved]
  - Pain [Not Recovered/Not Resolved]
  - Abdominal distension [Not Recovered/Not Resolved]
  - Mouth ulceration [Not Recovered/Not Resolved]
  - Stomatitis [Not Recovered/Not Resolved]
  - Flushing [Not Recovered/Not Resolved]
  - Constipation [Not Recovered/Not Resolved]
  - Anxiety disorder [Unknown]
  - Local swelling [Not Recovered/Not Resolved]
  - Fatigue [Not Recovered/Not Resolved]
  - Dry skin [Not Recovered/Not Resolved]
  - Diarrhoea [Not Recovered/Not Resolved]
  - Pruritus [Not Recovered/Not Resolved]
  - Rash pustular [Unknown]
